FAERS Safety Report 24344538 (Version 1)
Quarter: 2024Q3

REPORT INFORMATION
  Report Type: Report from Study
  Country: US (occurrence: US)
  Receive Date: 20240920
  Receipt Date: 20240920
  Transmission Date: 20241017
  Serious: No
  Sender: BIOVITRUM
  Company Number: US-BIOVITRUM-2024-US-011392

PATIENT
  Age: 12 Year
  Sex: Female

DRUGS (1)
  1. KINERET [Suspect]
     Active Substance: ANAKINRA
     Indication: Still^s disease
     Dosage: DAILY
     Route: 058
     Dates: start: 20240730

REACTIONS (6)
  - Intentional product misuse [Recovered/Resolved]
  - Injection site pruritus [Unknown]
  - Injection site induration [Unknown]
  - Injection site pain [Unknown]
  - Gait disturbance [Unknown]
  - Unevaluable event [Unknown]

NARRATIVE: CASE EVENT DATE: 20240730
